FAERS Safety Report 14502210 (Version 3)
Quarter: 2018Q1

REPORT INFORMATION
  Report Type: Spontaneous
  Country: BR (occurrence: BR)
  Receive Date: 20180208
  Receipt Date: 20180215
  Transmission Date: 20180509
  Serious: Yes (Disabling)
  Sender: FDA-Public Use
  Company Number: BR-009507513-1802BRA003485

PATIENT
  Age: 72 Year
  Sex: Female
  Weight: 67 kg

DRUGS (3)
  1. JANUVIA [Suspect]
     Active Substance: SITAGLIPTIN PHOSPHATE
     Indication: HYPERSENSITIVITY
     Dosage: UNK
     Route: 048
     Dates: start: 2016
  2. GLIFAGE [Concomitant]
     Active Substance: METFORMIN HYDROCHLORIDE
     Dosage: 500 (NON-SPECIFIED UNIT), 4 TIMES A DAY
     Route: 048
  3. JANUVIA [Suspect]
     Active Substance: SITAGLIPTIN PHOSPHATE
     Indication: TYPE 2 DIABETES MELLITUS
     Dosage: UNK
     Route: 048
     Dates: start: 20180130, end: 20180203

REACTIONS (7)
  - Diarrhoea [Recovered/Resolved]
  - Product use in unapproved indication [Unknown]
  - Speech disorder [Recovering/Resolving]
  - Mouth swelling [Recovering/Resolving]
  - Burning sensation [Recovering/Resolving]
  - Dyspnoea [Recovering/Resolving]
  - Throat irritation [Recovering/Resolving]

NARRATIVE: CASE EVENT DATE: 2016
